FAERS Safety Report 23501423 (Version 1)
Quarter: 2024Q1

REPORT INFORMATION
  Report Type: Spontaneous
  Country: DK (occurrence: None)
  Receive Date: 20240208
  Receipt Date: 20240208
  Transmission Date: 20240410
  Serious: Yes (Other)
  Sender: FDA-Public Use
  Company Number: 2024A024996

PATIENT
  Age: 63 Year
  Sex: Female

DRUGS (5)
  1. QUETIAPINE [Suspect]
     Active Substance: QUETIAPINE
     Indication: Mental disorder
     Dosage: UNKNOWN
     Route: 048
     Dates: start: 202310
  2. ACETAMINOPHEN [Concomitant]
     Active Substance: ACETAMINOPHEN
     Indication: Pain
     Dates: start: 20170309
  3. CODILEK [Concomitant]
     Indication: Pain
     Dates: start: 20181219
  4. IBUPROFEN [Concomitant]
     Active Substance: IBUPROFEN
     Indication: Pain
  5. NIZORAL [Concomitant]
     Active Substance: KETOCONAZOLE
     Indication: Dandruff
     Dates: start: 20170109

REACTIONS (2)
  - Tonic clonic movements [Not Recovered/Not Resolved]
  - Epilepsy [Not Recovered/Not Resolved]

NARRATIVE: CASE EVENT DATE: 20231001
